FAERS Safety Report 9097832 (Version 1)
Quarter: 2013Q1

REPORT INFORMATION
  Report Type: Spontaneous
  Country: US (occurrence: US)
  Receive Date: 20130212
  Receipt Date: 20130212
  Transmission Date: 20140127
  Serious: No
  Sender: FDA-Public Use
  Company Number: US-TEVA-359721USA

PATIENT
  Age: 34 Year
  Sex: Female

DRUGS (9)
  1. SALBUTAMOL [Suspect]
     Indication: ASTHMA
     Dosage: 2 PUFFS Q 4-6 HRS
  2. VIIBRYD [Suspect]
     Dosage: 10 MILLIGRAM DAILY;
     Route: 048
     Dates: start: 20120202
  3. LAMICTAL [Concomitant]
     Indication: BIPOLAR DISORDER
  4. SEASONIQUE [Concomitant]
     Indication: CONTRACEPTION
  5. VALTREX [Concomitant]
     Indication: ORAL HERPES
  6. MULTIVITAMIN [Concomitant]
  7. HUMIRA [Concomitant]
     Indication: PSORIASIS
  8. AMBIEN [Concomitant]
     Indication: INSOMNIA
  9. XANAX [Concomitant]
     Indication: ANXIETY

REACTIONS (4)
  - Panic attack [Not Recovered/Not Resolved]
  - Paraesthesia [Not Recovered/Not Resolved]
  - Palpitations [Not Recovered/Not Resolved]
  - Muscle spasms [Not Recovered/Not Resolved]
